FAERS Safety Report 8170028-7 (Version None)
Quarter: 2012Q1

REPORT INFORMATION
  Report Type: 
  Country: None (occurrence: None)
  Receive Date: 20120228
  Receipt Date: 20120222
  Transmission Date: 20120608
  Serious: Yes (Hospitalization)
  Sender: FDA-Public Use
  Company Number: CA-B.I. PHARMACEUTICALS,INC./RIDGEFIELD-2012-CN-00409CN

PATIENT
  Age: 71 Year
  Sex: Male

DRUGS (2)
  1. PRADAXA [Suspect]
     Indication: THROMBOSIS PROPHYLAXIS
     Dosage: 220 MG
     Dates: start: 20120101, end: 20120101
  2. PRADAXA [Suspect]
     Indication: HIP ARTHROPLASTY

REACTIONS (7)
  - HEADACHE [None]
  - DIZZINESS [None]
  - SYNCOPE [None]
  - SKIN DISCOLOURATION [None]
  - RECTAL HAEMORRHAGE [None]
  - CONSTIPATION [None]
  - ASTHENIA [None]
